FAERS Safety Report 7291748-2 (Version None)
Quarter: 2011Q1

REPORT INFORMATION
  Report Type: 
  Country: None (occurrence: None)
  Receive Date: 20110214
  Receipt Date: 20110203
  Transmission Date: 20110831
  Serious: Yes (Other)
  Sender: FDA-Public Use
  Company Number: US-BAXTER-2010BH014107

PATIENT
  Age: 50 Year
  Sex: Male
  Weight: 92 kg

DRUGS (17)
  1. CONTRAST [Suspect]
     Indication: ANGIOGRAM
     Route: 042
     Dates: start: 20051210, end: 20051210
  2. VICODIN [Concomitant]
     Indication: PRODUCT USED FOR UNKNOWN INDICATION
     Route: 065
  3. WARFARIN [Concomitant]
     Route: 065
     Dates: start: 20050101
  4. PHENERGAN [Suspect]
     Route: 042
     Dates: start: 20051210
  5. CONTRAST [Suspect]
     Indication: COMPUTERISED TOMOGRAM
     Route: 042
     Dates: start: 20051210, end: 20051210
  6. NEURONTIN [Concomitant]
     Indication: PRODUCT USED FOR UNKNOWN INDICATION
     Route: 065
  7. ESZOPICLONE [Concomitant]
     Indication: PRODUCT USED FOR UNKNOWN INDICATION
     Route: 065
  8. MUSCLE RELAXANTS [Concomitant]
     Indication: PRODUCT USED FOR UNKNOWN INDICATION
     Route: 065
  9. PHENERGAN [Suspect]
     Indication: PRODUCT USED FOR UNKNOWN INDICATION
     Route: 030
     Dates: start: 20050626
  10. SODIUM CHLORIDE 0.9% IN PLASTIC CONTAINER [Suspect]
     Indication: PRODUCT USED FOR UNKNOWN INDICATION
     Route: 040
     Dates: start: 20051205, end: 20051205
  11. DILAUDID [Suspect]
     Route: 042
     Dates: start: 20051204, end: 20051204
  12. DILAUDID [Suspect]
     Route: 042
     Dates: start: 20051210, end: 20051210
  13. DILAUDID [Suspect]
     Route: 042
     Dates: start: 20051210, end: 20051210
  14. SODIUM CHLORIDE 0.9% IN PLASTIC CONTAINER [Suspect]
     Route: 040
     Dates: start: 20051205, end: 20051205
  15. PHENERGAN [Suspect]
     Route: 042
     Dates: start: 20051204
  16. DILAUDID [Suspect]
     Indication: PAIN
     Route: 030
     Dates: start: 20050626, end: 20050626
  17. WARFARIN [Concomitant]
     Indication: PRODUCT USED FOR UNKNOWN INDICATION
     Route: 065
     Dates: start: 20050101

REACTIONS (14)
  - INFERTILITY [None]
  - CONFUSIONAL STATE [None]
  - SPEECH DISORDER [None]
  - PAIN IN EXTREMITY [None]
  - INCORRECT DRUG ADMINISTRATION RATE [None]
  - PULMONARY EMBOLISM [None]
  - INJECTION SITE PAIN [None]
  - TOTAL LUNG CAPACITY DECREASED [None]
  - DEPRESSION [None]
  - LOSS OF CONSCIOUSNESS [None]
  - SCAR [None]
  - OEDEMA PERIPHERAL [None]
  - INFUSION SITE THROMBOSIS [None]
  - TREMOR [None]
